FAERS Safety Report 24326831 (Version 3)
Quarter: 2024Q4

REPORT INFORMATION
  Report Type: Spontaneous
  Country: IN (occurrence: IN)
  Receive Date: 20240917
  Receipt Date: 20241115
  Transmission Date: 20250114
  Serious: Yes (Death, Other)
  Sender: ROCHE
  Company Number: IN-ROCHE-3436619

PATIENT
  Age: 36 Year
  Sex: Male

DRUGS (2)
  1. TECENTRIQ [Suspect]
     Active Substance: ATEZOLIZUMAB
     Indication: Hepatocellular carcinoma
     Route: 041
     Dates: start: 20230915
  2. AVASTIN [Suspect]
     Active Substance: BEVACIZUMAB
     Indication: Hepatocellular carcinoma
     Route: 042
     Dates: start: 20230915

REACTIONS (3)
  - Pathological fracture [Unknown]
  - Off label use [Unknown]
  - Death [Fatal]
